FAERS Safety Report 25765114 (Version 2)
Quarter: 2025Q3

REPORT INFORMATION
  Report Type: Report from Study
  Country: US (occurrence: US)
  Receive Date: 20250905
  Receipt Date: 20250910
  Transmission Date: 20251020
  Serious: No
  Sender: JOHNSON AND JOHNSON
  Company Number: US-JNJFOC-20250903026

PATIENT
  Age: 67 Year
  Sex: Male

DRUGS (1)
  1. GUSELKUMAB [Suspect]
     Active Substance: GUSELKUMAB
     Indication: Psoriasis
     Dosage: AT WEEK 0, THEN WEEK 4 AND THEN EVERY 8 WEEKS
     Route: 058
     Dates: start: 20250730

REACTIONS (4)
  - Device deployment issue [Unknown]
  - Inappropriate schedule of product administration [Unknown]
  - Corrective lens user [Unknown]
  - Application site reaction [Unknown]

NARRATIVE: CASE EVENT DATE: 20250731
